FAERS Safety Report 19592228 (Version 1)
Quarter: 2021Q3

REPORT INFORMATION
  Report Type: Spontaneous
  Country: US (occurrence: US)
  Receive Date: 20210722
  Receipt Date: 20210722
  Transmission Date: 20211014
  Serious: Yes (Hospitalization, Other)
  Sender: FDA-Public Use
  Company Number: US-UNITED THERAPEUTICS-UNT-2021-011297

PATIENT
  Age: 65 Year
  Sex: Female
  Weight: 68.93 kg

DRUGS (3)
  1. ORENITRAM [Suspect]
     Active Substance: TREPROSTINIL
     Indication: PULMONARY ARTERIAL HYPERTENSION
     Dosage: UNK
     Route: 048
     Dates: start: 20200207
  2. ORENITRAM [Suspect]
     Active Substance: TREPROSTINIL
     Dosage: 0.5 MG, Q8H (2 TABLETS OF 0.25 MG)
     Route: 048
     Dates: end: 202106
  3. ORENITRAM [Suspect]
     Active Substance: TREPROSTINIL
     Indication: PULMONARY ARTERIAL HYPERTENSION
     Dosage: UNK
     Route: 048

REACTIONS (5)
  - Kidney infection [Unknown]
  - Sepsis [Unknown]
  - Cystitis [Unknown]
  - Jaundice [Unknown]
  - Vomiting [Unknown]

NARRATIVE: CASE EVENT DATE: 202106
